FAERS Safety Report 24670405 (Version 1)
Quarter: 2024Q4

REPORT INFORMATION
  Report Type: Report from Study
  Country: US (occurrence: US)
  Receive Date: 20241127
  Receipt Date: 20241127
  Transmission Date: 20250115
  Serious: Yes (Other)
  Sender: ALNYLAM PHARMACEUTICALS
  Company Number: US-ALNYLAM PHARMACEUTICALS, INC.-ALN-2024-006575

PATIENT

DRUGS (1)
  1. GIVLAARI [Suspect]
     Active Substance: GIVOSIRAN SODIUM
     Indication: Product used for unknown indication
     Dosage: 100 UNK, MONTHLY (189 MG/ML VIALS)
     Route: 058
     Dates: start: 20210331, end: 20210331

REACTIONS (4)
  - Neoplasm malignant [Unknown]
  - Porphyria acute [Unknown]
  - Renal disorder [Unknown]
  - Liver disorder [Unknown]
